FAERS Safety Report 5237635-2 (Version None)
Quarter: 2007Q1

REPORT INFORMATION
  Report Type: 
  Country: None (occurrence: None)
  Receive Date: 20070214
  Receipt Date: 20070208
  Transmission Date: 20070707
  Serious: Yes (Hospitalization, Other)
  Sender: FDA-Public Use
  Company Number: US-BAYER-200710910GDS

PATIENT
  Age: 5 Month
  Sex: Female
  Weight: 5.5 kg

DRUGS (1)
  1. NIFEDIPINE [Suspect]
     Indication: ACCIDENTAL EXPOSURE
     Route: 065

REACTIONS (2)
  - HYPOTENSION [None]
  - RENAL FAILURE [None]
